FAERS Safety Report 23435213 (Version 3)
Quarter: 2024Q1

REPORT INFORMATION
  Report Type: Spontaneous
  Country: KR (occurrence: KR)
  Receive Date: 20240123
  Receipt Date: 20240223
  Transmission Date: 20240409
  Serious: Yes (Other)
  Sender: FDA-Public Use
  Company Number: KR-KOWA-24JP000061AA

PATIENT
  Age: 42 Year
  Sex: Male
  Weight: 78.7 kg

DRUGS (4)
  1. LIVALO [Suspect]
     Active Substance: PITAVASTATIN CALCIUM
     Indication: Hyperlipidaemia
     Dosage: 1 DF, QD
     Route: 048
     Dates: start: 20210621
  2. VALSARTAN [Suspect]
     Active Substance: VALSARTAN
     Indication: Hyperlipidaemia
     Dosage: 1 DF, QD
     Route: 048
     Dates: start: 20210621
  3. EMPAGLIFLOZIN\METFORMIN HYDROCHLORIDE [Concomitant]
     Active Substance: EMPAGLIFLOZIN\METFORMIN HYDROCHLORIDE
     Indication: Type 2 diabetes mellitus
     Dosage: 1 DF, BID
     Route: 048
     Dates: start: 20230515
  4. GUARDLET [Concomitant]
     Indication: Type 2 diabetes mellitus
     Dosage: 100 MG, BID
     Route: 048
     Dates: start: 20230804, end: 20240114

REACTIONS (1)
  - Gastric cancer [Recovering/Resolving]

NARRATIVE: CASE EVENT DATE: 20231227
